FAERS Safety Report 8434369-8 (Version None)
Quarter: 2012Q2

REPORT INFORMATION
  Report Type: 
  Country: None (occurrence: None)
  Receive Date: 20120613
  Receipt Date: 20120606
  Transmission Date: 20120825
  Serious: Yes (Hospitalization, Other)
  Sender: FDA-Public Use
  Company Number: US-ELI_LILLY_AND_COMPANY-US201206002348

PATIENT
  Sex: Female
  Weight: 63.946 kg

DRUGS (6)
  1. GLUCOPHAGE                              /USA/ [Concomitant]
     Route: 048
  2. INSULIN [Concomitant]
     Indication: GESTATIONAL DIABETES
     Route: 058
  3. ASPIRIN                                 /USA/ [Concomitant]
     Dosage: 81 MG, QD
     Route: 048
  4. BYETTA [Suspect]
     Dosage: 5 UG, BID
     Route: 058
     Dates: start: 20100101, end: 20120101
  5. MULTI-VITAMIN [Concomitant]
     Route: 048
  6. FERROUS SULFATE TAB [Concomitant]
     Dosage: 325 MG, QD
     Route: 048

REACTIONS (3)
  - PANCREATIC CARCINOMA [None]
  - PANCREATIC CYST [None]
  - ULCER [None]
